FAERS Safety Report 24367825 (Version 2)
Quarter: 2024Q4

REPORT INFORMATION
  Report Type: Spontaneous
  Country: ES (occurrence: ES)
  Receive Date: 20240926
  Receipt Date: 20241003
  Transmission Date: 20250115
  Serious: Yes (Hospitalization, Other)
  Sender: PFIZER
  Company Number: ES-PFIZER INC-PV202400124219

PATIENT
  Age: 46 Year
  Sex: Female

DRUGS (2)
  1. IRINOTECAN HYDROCHLORIDE [Suspect]
     Active Substance: IRINOTECAN HYDROCHLORIDE
     Indication: Colon cancer metastatic
     Dosage: UNK (INFUSION)
  2. BEVACIZUMAB [Concomitant]
     Active Substance: BEVACIZUMAB
     Indication: Colon cancer metastatic
     Dosage: UNK

REACTIONS (1)
  - Acute pulmonary oedema [Recovered/Resolved]
